FAERS Safety Report 25788536 (Version 2)
Quarter: 2025Q3

REPORT INFORMATION
  Report Type: Spontaneous
  Country: US (occurrence: US)
  Receive Date: 20250910
  Receipt Date: 20250926
  Transmission Date: 20251021
  Serious: Yes (Death, Hospitalization, Other)
  Sender: NEUROCRINE BIOSCIENCES
  Company Number: US-NEUROCRINE BIOSCIENCES INC.-2025NBI11776

PATIENT
  Age: 61 Year
  Sex: Female

DRUGS (5)
  1. INGREZZA [Suspect]
     Active Substance: VALBENAZINE DITOSYLATE
     Indication: Tardive dyskinesia
     Route: 065
  2. ZYPREXA [Concomitant]
     Active Substance: OLANZAPINE
     Indication: Product used for unknown indication
  3. LEXAPRO [Concomitant]
     Active Substance: ESCITALOPRAM OXALATE
     Indication: Product used for unknown indication
  4. VALIUM [Concomitant]
     Active Substance: DIAZEPAM
  5. LITHIUM [Concomitant]
     Active Substance: LITHIUM

REACTIONS (5)
  - Neuroleptic malignant syndrome [Fatal]
  - Hip fracture [Unknown]
  - Fall [Unknown]
  - General physical health deterioration [Unknown]
  - Adverse drug reaction [Unknown]
